FAERS Safety Report 15429976 (Version 1)
Quarter: 2018Q3

REPORT INFORMATION
  Report Type: Spontaneous
  Country: CA (occurrence: CA)
  Receive Date: 20180926
  Receipt Date: 20180926
  Transmission Date: 20181010
  Serious: Yes (Other)
  Sender: FDA-Public Use
  Company Number: CA-PFIZER INC-2018384139

PATIENT

DRUGS (6)
  1. INFLIXIMAB HOSPIRA [Suspect]
     Active Substance: INFLIXIMAB
     Indication: CROHN^S DISEASE
     Dosage: 454 MG, UNK
     Route: 042
  2. CEFAZOLIN [Suspect]
     Active Substance: CEFAZOLIN
     Dosage: UNK
  3. BUDESONIDE. [Suspect]
     Active Substance: BUDESONIDE
     Dosage: UNK
     Route: 065
  4. RABEPRAZOLE [Suspect]
     Active Substance: RABEPRAZOLE
     Dosage: UNK
     Route: 065
  5. CEFAZOLIN [Suspect]
     Active Substance: CEFAZOLIN
     Dosage: UNK
  6. AZATHIOPRINE. [Suspect]
     Active Substance: AZATHIOPRINE
     Dosage: UNK
     Route: 065

REACTIONS (1)
  - Pancreatitis [Unknown]
